FAERS Safety Report 9003549 (Version 3)
Quarter: 2013Q1

REPORT INFORMATION
  Report Type: Spontaneous
  Country: FR (occurrence: FR)
  Receive Date: 20130108
  Receipt Date: 20130117
  Transmission Date: 20140127
  Serious: Yes (Life-Threatening, Hospitalization, Disabling, Other)
  Sender: FDA-Public Use
  Company Number: FR-AMGEN-FRASP2013000928

PATIENT
  Age: 46 Year
  Sex: Female

DRUGS (1)
  1. ENBREL [Suspect]
     Indication: ANKYLOSING SPONDYLITIS
     Dosage: 50 MG, WEEKLY
     Route: 058
     Dates: start: 20120222, end: 20120229

REACTIONS (3)
  - Cerebral infarction [Recovered/Resolved with Sequelae]
  - Cardiac aneurysm [Unknown]
  - Atrial septal defect [Unknown]
